FAERS Safety Report 12263201 (Version 2)
Quarter: 2016Q2

REPORT INFORMATION
  Report Type: Report from Study
  Country: US (occurrence: US)
  Receive Date: 20160413
  Receipt Date: 20160503
  Transmission Date: 20160815
  Serious: Yes (Other)
  Sender: FDA-Public Use
  Company Number: US-ACTELION-A-US2015-129078

PATIENT
  Age: 54 Year
  Sex: Female

DRUGS (4)
  1. REMODULIN [Concomitant]
     Active Substance: TREPROSTINIL
     Dosage: UNK
     Route: 042
  2. DILTIAZEM [Concomitant]
     Active Substance: DILTIAZEM
  3. ADCIRCA [Concomitant]
     Active Substance: TADALAFIL
     Dosage: 40 MG, QD
  4. MACITENTAN [Suspect]
     Active Substance: MACITENTAN
     Indication: PULMONARY ARTERIAL HYPERTENSION
     Dosage: 10 MG, QD
     Route: 048
     Dates: start: 20140428

REACTIONS (7)
  - Nasopharyngitis [Unknown]
  - Presyncope [Recovered/Resolved]
  - Chest pain [Recovered/Resolved]
  - Blindness [Recovered/Resolved]
  - Hypersomnia [Recovering/Resolving]
  - Drug administration error [Recovering/Resolving]
  - Sinusitis [Unknown]
